FAERS Safety Report 9385066 (Version 2)
Quarter: 2013Q3

REPORT INFORMATION
  Report Type: Spontaneous
  Country: US (occurrence: US)
  Receive Date: 20130705
  Receipt Date: 20130821
  Transmission Date: 20140515
  Serious: Yes (Hospitalization)
  Sender: FDA-Public Use
  Company Number: US-009507513-1307USA000843

PATIENT
  Age: 63 Year
  Sex: Male
  Weight: 113.38 kg

DRUGS (2)
  1. DECADRON [Suspect]
     Indication: PLASMA CELL MYELOMA
     Dosage: 20 MG, Q8 DAY
     Route: 042
     Dates: start: 20120905
  2. VELCADE [Suspect]
     Indication: PLASMA CELL MYELOMA
     Dosage: 3 MG, Q8 DAYS
     Route: 042
     Dates: start: 20120805

REACTIONS (3)
  - Atrial fibrillation [Recovered/Resolved]
  - Pneumonia [Recovered/Resolved]
  - Expired drug administered [Unknown]
